FAERS Safety Report 4893094-0 (Version None)
Quarter: 2005Q4

REPORT INFORMATION
  Report Type: 
  Country: None (occurrence: None)
  Receive Date: 20051220
  Receipt Date: 20050214
  Transmission Date: 20060501
  Serious: Yes (Hospitalization)
  Sender: FDA-Public Use
  Company Number: PHEH2005US02088

PATIENT
  Age: 60 Year
  Sex: Male

DRUGS (2)
  1. AREDIA [Suspect]
     Indication: OSTEOPOROSIS
     Dosage: 30 MG/ Q3MO
     Dates: start: 20000701
  2. MULTIVITAMINS (ASCORBIC ACID, ERGOCALCIFEROL, FOLIC ACID, NICOTINAMIDE [Concomitant]

REACTIONS (5)
  - INFUSION SITE REACTION [None]
  - INFUSION SITE WARMTH [None]
  - INJECTION SITE EXTRAVASATION [None]
  - PAIN [None]
  - SWELLING [None]
